FAERS Safety Report 4755036-8 (Version None)
Quarter: 2005Q3

REPORT INFORMATION
  Report Type: 
  Country: None (occurrence: None)
  Receive Date: 20050829
  Receipt Date: 20050803
  Transmission Date: 20060218
  Serious: Yes (Other)
  Sender: FDA-Public Use
  Company Number: JP-BRISTOL-MYERS SQUIBB COMPANY-13063086

PATIENT
  Age: 29 Year
  Sex: Female

DRUGS (2)
  1. PARAPLATIN [Suspect]
     Indication: BENIGN OVARIAN TUMOUR
     Route: 042
     Dates: start: 19940101, end: 19940101
  2. CYCLOPHOSPHAMIDE [Suspect]
     Indication: BENIGN OVARIAN TUMOUR
     Route: 042
     Dates: start: 19940101, end: 19940101

REACTIONS (1)
  - HODGKIN'S DISEASE [None]
